FAERS Safety Report 9768907 (Version 1)
Quarter: 2013Q3

REPORT INFORMATION
  Report Type: Spontaneous
  Country: JP (occurrence: None)
  Receive Date: 20130828
  Receipt Date: 20130828
  Transmission Date: 20140515
  Serious: Yes (Hospitalization, Other)
  Sender: FDA-Public Use
  Company Number: CO-OR-JP-2013-017

PATIENT
  Age: 79 Year
  Sex: Female

DRUGS (2)
  1. PREDNISOLONE [Suspect]
     Indication: DERMATOMYOSITIS
     Dates: start: 201003
  2. BETAMETHASONE [Suspect]
     Indication: DERMATOMYOSITIS

REACTIONS (4)
  - Nocardiosis [None]
  - Oedema peripheral [None]
  - Pulmonary mass [None]
  - Pulmonary cavitation [None]
